FAERS Safety Report 15091514 (Version 1)
Quarter: 2018Q2

REPORT INFORMATION
  Report Type: Report from Study
  Country: None (occurrence: CO)
  Receive Date: 20180629
  Receipt Date: 20180629
  Transmission Date: 20180711
  Serious: Yes (Hospitalization, Other)
  Sender: FDA-Public Use
  Company Number: CO-ABBVIE-18S-036-2365892-00

PATIENT
  Age: 7 Month
  Sex: Female
  Weight: 7 kg

DRUGS (1)
  1. SYNAGIS [Suspect]
     Active Substance: PALIVIZUMAB
     Indication: BRONCHOPULMONARY DYSPLASIA
     Route: 030
     Dates: start: 20171018, end: 20180410

REACTIONS (6)
  - Hydrocephalus [Not Recovered/Not Resolved]
  - Hypokalaemia [Recovering/Resolving]
  - Pneumonia [Not Recovered/Not Resolved]
  - Seizure [Not Recovered/Not Resolved]
  - Influenza [Not Recovered/Not Resolved]
  - Meningitis [Recovering/Resolving]

NARRATIVE: CASE EVENT DATE: 201805
